FAERS Safety Report 25180417 (Version 1)
Quarter: 2025Q2

REPORT INFORMATION
  Report Type: Spontaneous
  Country: PL (occurrence: PL)
  Receive Date: 20250409
  Receipt Date: 20250409
  Transmission Date: 20250716
  Serious: Yes (Other)
  Sender: NOVARTIS
  Company Number: PL-002147023-NVSC2025PL053978

PATIENT
  Age: 70 Year
  Sex: Male

DRUGS (6)
  1. ASCIMINIB [Suspect]
     Active Substance: ASCIMINIB
     Indication: Chronic myeloid leukaemia
     Route: 065
     Dates: start: 202401
  2. ASCIMINIB [Suspect]
     Active Substance: ASCIMINIB
     Route: 065
     Dates: start: 202403
  3. IMATINIB [Suspect]
     Active Substance: IMATINIB
     Indication: Chronic myeloid leukaemia
     Route: 048
     Dates: start: 20240712
  4. IMATINIB [Suspect]
     Active Substance: IMATINIB
     Dosage: 100 MG, BIW
     Route: 048
     Dates: start: 20240719
  5. IMATINIB [Suspect]
     Active Substance: IMATINIB
     Dosage: 100 MG, TIW
     Route: 048
     Dates: start: 20240819
  6. IMATINIB [Suspect]
     Active Substance: IMATINIB
     Dosage: 100 MG, QD
     Route: 048
     Dates: start: 20241001

REACTIONS (2)
  - Pancytopenia [Unknown]
  - Myelosuppression [Unknown]

NARRATIVE: CASE EVENT DATE: 20240201
